FAERS Safety Report 23375249 (Version 1)
Quarter: 2024Q1

REPORT INFORMATION
  Report Type: Spontaneous
  Country: AU (occurrence: AU)
  Receive Date: 20240106
  Receipt Date: 20240106
  Transmission Date: 20240409
  Serious: Yes (Other)
  Sender: FDA-Public Use
  Company Number: AU-AMGEN-AUSSP2023232042

PATIENT
  Age: 44 Year
  Sex: Male

DRUGS (3)
  1. CINACALCET HYDROCHLORIDE [Suspect]
     Active Substance: CINACALCET HYDROCHLORIDE
     Indication: Hyperparathyroidism tertiary
     Dosage: UNK
     Route: 065
  2. WARFARIN [Concomitant]
     Active Substance: WARFARIN
     Indication: Atrial flutter
     Dosage: UNK
     Route: 065
  3. HEPARIN [Concomitant]
     Active Substance: HEPARIN SODIUM
     Indication: Atrial flutter
     Dosage: UNK
     Route: 065

REACTIONS (8)
  - Calciphylaxis [Unknown]
  - Retinal artery occlusion [Unknown]
  - Optic ischaemic neuropathy [Unknown]
  - Drug ineffective for unapproved indication [Unknown]
  - Blood parathyroid hormone increased [Unknown]
  - Blood phosphorus increased [Unknown]
  - Platelet count decreased [Unknown]
  - Off label use [Unknown]
